FAERS Safety Report 5406226-2 (Version None)
Quarter: 2007Q3

REPORT INFORMATION
  Report Type: 
  Country: None (occurrence: None)
  Receive Date: 20070802
  Receipt Date: 20070802
  Transmission Date: 20080115
  Serious: Yes (Hospitalization)
  Sender: FDA-Public Use
  Company Number: None

PATIENT
  Sex: Female
  Weight: 75.2 kg

DRUGS (10)
  1. NAFCILLIN SODIUM [Suspect]
     Indication: STAPHYLOCOCCAL INFECTION
     Dosage: 2G/100 ML EVERY 4 HOURS IV
     Route: 042
     Dates: start: 20070529, end: 20070601
  2. CYCLOBENZAPRINE HCL [Concomitant]
  3. ENOXAPARIN SODIUM [Concomitant]
  4. IBUPROFEN [Concomitant]
  5. MORPHINE [Concomitant]
  6. POTASSIUM CHLORIDE [Concomitant]
  7. PROCHLORPERAZINE [Concomitant]
  8. TRAMADOL HCL [Concomitant]
  9. VANCOMYCIN [Concomitant]
  10. VENLAFAXINE HCL [Concomitant]

REACTIONS (1)
  - RENAL FAILURE ACUTE [None]
